FAERS Safety Report 19372785 (Version 1)
Quarter: 2021Q2

REPORT INFORMATION
  Report Type: Report from Study
  Country: GB (occurrence: PE)
  Receive Date: 20210604
  Receipt Date: 20210604
  Transmission Date: 20210717
  Serious: Yes (Other)
  Sender: FDA-Public Use
  Company Number: PE-ASTELLAS-2021US020217

PATIENT
  Age: 82 Year
  Sex: Female

DRUGS (1)
  1. ERLOTINIB [Suspect]
     Active Substance: ERLOTINIB
     Indication: NON-SMALL CELL LUNG CANCER
     Dosage: 150 MG, EVERY OTHER DAY (FREQUENCY: EVERY OTHER DAY)
     Route: 048
     Dates: start: 20180611

REACTIONS (5)
  - Mobility decreased [Unknown]
  - Neuropathy peripheral [Unknown]
  - Face injury [Unknown]
  - Limb injury [Unknown]
  - Inflammation [Unknown]
